FAERS Safety Report 8131264-9 (Version None)
Quarter: 2011Q4

REPORT INFORMATION
  Report Type: 
  Country: None (occurrence: None)
  Receive Date: 20111227
  Receipt Date: 20111109
  Transmission Date: 20120403
  Serious: No
  Sender: FDA-Public Use
  Company Number: PHEH2011US009243

PATIENT
  Age: 57 Year
  Sex: Female

DRUGS (1)
  1. GILENYA [Suspect]
     Dosage: 0.5 MG, QD, ORAL
     Route: 048

REACTIONS (7)
  - HYPOAESTHESIA [None]
  - ARTHRALGIA [None]
  - ABNORMAL SENSATION IN EYE [None]
  - HOT FLUSH [None]
  - BACK PAIN [None]
  - VISION BLURRED [None]
  - HEADACHE [None]
